FAERS Safety Report 8573930-7 (Version None)
Quarter: 2012Q3

REPORT INFORMATION
  Report Type: 
  Country: None (occurrence: None)
  Receive Date: 20120806
  Receipt Date: 20120801
  Transmission Date: 20120928
  Serious: Yes (Life-Threatening, Hospitalization, Disabling, Other)
  Sender: FDA-Public Use
  Company Number: FR-TEVA-329357USA

PATIENT
  Age: 65 Year
  Sex: Male
  Weight: 74 kg

DRUGS (5)
  1. TREANDA [Suspect]
     Indication: BONE MARROW CONDITIONING REGIMEN
     Dosage: 200 MG/KG DAILY; DAY 1 AND 2 OF EACH CYCLE
     Route: 042
     Dates: start: 20120305
  2. MELPHALAN HYDROCHLORIDE [Concomitant]
     Dosage: 270 MG AT DAY 6
  3. ETOPOSIDE [Suspect]
     Indication: BONE MARROW CONDITIONING REGIMEN
     Dosage: 380 MG FROM DAY 2 TO DAY 5
     Dates: start: 20120306
  4. RITUXIMAB [Suspect]
     Indication: BONE MARROW CONDITIONING REGIMEN
     Dates: start: 20120306
  5. CYTARABINE [Suspect]
     Indication: BONE MARROW CONDITIONING REGIMEN
     Dosage: CONTINUOUS INFUSION W/SYRINGE DRIVER 775 MG/DAY-DAY 2 TO 5
     Route: 042

REACTIONS (5)
  - GENERALISED OEDEMA [None]
  - RENAL FAILURE ACUTE [None]
  - OEDEMA PERIPHERAL [None]
  - BLOOD CREATININE INCREASED [None]
  - PANCYTOPENIA [None]
